FAERS Safety Report 11976100 (Version 2)
Quarter: 2016Q1

REPORT INFORMATION
  Report Type: Report from Study
  Country: US (occurrence: US)
  Receive Date: 20160129
  Receipt Date: 20160328
  Transmission Date: 20160526
  Serious: Yes (Other)
  Sender: FDA-Public Use
  Company Number: US-AMGEN-USASL2016009526

PATIENT
  Age: 41 Year
  Sex: Female

DRUGS (1)
  1. ENBREL [Suspect]
     Active Substance: ETANERCEPT
     Indication: RHEUMATOID ARTHRITIS
     Dosage: 50 MG, QWK
     Route: 065
     Dates: start: 20151030

REACTIONS (8)
  - Urinary tract pain [Unknown]
  - Ear infection [Unknown]
  - Rheumatoid arthritis [Recovered/Resolved]
  - Renal pain [Unknown]
  - Pneumonia [Recovered/Resolved]
  - Joint injury [Unknown]
  - Malaise [Recovered/Resolved]
  - Sinusitis [Unknown]

NARRATIVE: CASE EVENT DATE: 2016
